FAERS Safety Report 8822302 (Version 1)
Quarter: 2012Q4

REPORT INFORMATION
  Report Type: 
  Country: US (occurrence: US)
  Receive Date: 20121003
  Receipt Date: 20121003
  Transmission Date: 20130627
  Serious: Yes (Hospitalization)
  Sender: FDA-Public Use
  Company Number: US-BAYER-2012-101770

PATIENT
  Age: 28 Year
  Sex: Female

DRUGS (6)
  1. YASMIN [Suspect]
     Dosage: UNK
  2. DILAUDID [Concomitant]
  3. ZOFRAN [Concomitant]
  4. ATIVAN [Concomitant]
  5. TORADOL [Concomitant]
     Dosage: UNK
  6. DEPO-PROVERA [Concomitant]
     Indication: CONTRACEPTION

REACTIONS (1)
  - Pulmonary embolism [None]
